FAERS Safety Report 5295264-9 (Version None)
Quarter: 2007Q2

REPORT INFORMATION
  Report Type: 
  Country: None (occurrence: None)
  Receive Date: 20070412
  Receipt Date: 20070330
  Transmission Date: 20071010
  Serious: Yes (Hospitalization)
  Sender: FDA-Public Use
  Company Number: US-SHR-US-2007-011468

PATIENT
  Age: 52 Year
  Sex: Female

DRUGS (1)
  1. BETASERON [Suspect]
     Indication: SECONDARY PROGRESSIVE MULTIPLE SCLEROSIS
     Dosage: 16 MIU, EVERY 2D
     Route: 058
     Dates: start: 20000508

REACTIONS (6)
  - CHEST PAIN [None]
  - DEHYDRATION [None]
  - INJECTION SITE RASH [None]
  - MULTIPLE SCLEROSIS [None]
  - PULMONARY EMBOLISM [None]
  - TREMOR [None]
